FAERS Safety Report 7108274-3 (Version None)
Quarter: 2010Q4

REPORT INFORMATION
  Report Type: 
  Country: None (occurrence: None)
  Receive Date: 20101115
  Receipt Date: 20101115
  Transmission Date: 20110411
  Serious: Yes (Disabling, Other)
  Sender: FDA-Public Use
  Company Number: None

PATIENT
  Age: 69 Year
  Sex: Female
  Weight: 39.9165 kg

DRUGS (2)
  1. TRANSENE 7.5 OR CLORAZEPATE RANBAXY [Suspect]
     Indication: SLEEP DISORDER
     Dosage: 1 AT NIGHT
     Dates: end: 20101007
  2. ATARAX [Concomitant]

REACTIONS (12)
  - AMNESIA [None]
  - ARTHRITIS [None]
  - CONDITION AGGRAVATED [None]
  - DRUG INEFFECTIVE [None]
  - FEELING HOT [None]
  - HEART RATE INCREASED [None]
  - INSOMNIA [None]
  - MALAISE [None]
  - NERVOUSNESS [None]
  - SINUS DISORDER [None]
  - VISION BLURRED [None]
  - WEIGHT DECREASED [None]
